FAERS Safety Report 14938985 (Version 1)
Quarter: 2018Q2

REPORT INFORMATION
  Report Type: Spontaneous
  Country: NL (occurrence: NL)
  Receive Date: 20180525
  Receipt Date: 20180525
  Transmission Date: 20180711
  Serious: Yes (Death, Hospitalization, Other)
  Sender: FDA-Public Use
  Company Number: NL-IMPAX LABORATORIES, INC-2018-IPXL-01047

PATIENT
  Age: 50 Year
  Sex: Male

DRUGS (13)
  1. DIVALPROEX SODIUM ER [Interacting]
     Active Substance: DIVALPROEX SODIUM
     Dosage: 800 MG, TWICE DAILY
     Route: 042
  2. PHENYTOIN. [Suspect]
     Active Substance: PHENYTOIN
     Dosage: 75 MG, TWICE DAILY
     Route: 042
  3. DIVALPROEX SODIUM ER [Interacting]
     Active Substance: DIVALPROEX SODIUM
     Dosage: 800 MG, THREE TIMES DAILY
     Route: 042
  4. ESOMEPRAZOLE [Suspect]
     Active Substance: ESOMEPRAZOLE
     Indication: PRODUCT USED FOR UNKNOWN INDICATION
     Dosage: 10 MG, DAILY DOSE
     Route: 065
  5. LOPERAMIDE [Suspect]
     Active Substance: LOPERAMIDE
     Indication: PRODUCT USED FOR UNKNOWN INDICATION
     Dosage: 1 MG, 3 /DAY
     Route: 048
  6. DIAZEPAM. [Suspect]
     Active Substance: DIAZEPAM
     Indication: PRODUCT USED FOR UNKNOWN INDICATION
     Dosage: 10 MG, PRN (AS NEEDED)
     Route: 050
  7. MEROPENEM. [Interacting]
     Active Substance: MEROPENEM
     Indication: PNEUMONIA
     Dosage: 1000 MG, THREE TIMES A DAY
     Route: 042
  8. PHENYTOIN. [Suspect]
     Active Substance: PHENYTOIN
     Indication: PROPHYLAXIS
     Dosage: 75 MG, TWICE DAILY
     Route: 042
  9. ATORVASTATIN [Suspect]
     Active Substance: ATORVASTATIN
     Indication: PRODUCT USED FOR UNKNOWN INDICATION
     Dosage: 40 MG, DAILY DOSE
     Route: 065
  10. DIVALPROEX SODIUM ER [Suspect]
     Active Substance: DIVALPROEX SODIUM
     Indication: PRODUCT USED FOR UNKNOWN INDICATION
     Dosage: UNK
     Route: 048
  11. CARBASALATE CALCIUM [Suspect]
     Active Substance: CARBASPIRIN
     Indication: PRODUCT USED FOR UNKNOWN INDICATION
     Dosage: 100 MG, DAILY DOSE
     Route: 065
  12. MEROPENEM. [Interacting]
     Active Substance: MEROPENEM
     Dosage: 1000 MG, THREE TIMES A DAY
     Route: 042
  13. PHENYTOIN. [Suspect]
     Active Substance: PHENYTOIN
     Dosage: 75 MG, THREE TIMES DAILY
     Route: 042

REACTIONS (10)
  - Acute respiratory failure [Unknown]
  - Depressed level of consciousness [Unknown]
  - Atelectasis [Unknown]
  - Anticonvulsant drug level below therapeutic [Unknown]
  - Pneumonia [Fatal]
  - Pleural effusion [Unknown]
  - Overdose [Unknown]
  - Labelled drug-drug interaction medication error [Unknown]
  - Hypoalbuminaemia [Unknown]
  - Hypotension [Unknown]
